FAERS Safety Report 23528522 (Version 1)
Quarter: 2024Q1

REPORT INFORMATION
  Report Type: Spontaneous
  Country: US (occurrence: US)
  Receive Date: 20240215
  Receipt Date: 20240215
  Transmission Date: 20240410
  Serious: No
  Sender: FDA-Public Use
  Company Number: US-Stemline Therapeutics, Inc.-2023ST004693

PATIENT
  Sex: Female

DRUGS (1)
  1. ELZONRIS [Suspect]
     Active Substance: TAGRAXOFUSP-ERZS
     Indication: Product used for unknown indication
     Dosage: 12 MCG/KG FROM DAY 1 TO DAY 5 OF A 21 DAY CYCLE
     Route: 042
     Dates: start: 20231113, end: 20231117

REACTIONS (1)
  - Back pain [Recovered/Resolved]
